FAERS Safety Report 9209481 (Version 1)
Quarter: 2013Q1

REPORT INFORMATION
  Report Type: Spontaneous
  Country: US (occurrence: None)
  Receive Date: 20120809
  Receipt Date: 20120809
  Transmission Date: 20140127
  Serious: Yes (Other)
  Sender: FDA-Public Use
  Company Number: 2012031913

PATIENT
  Age: 18 Year
  Sex: Female

DRUGS (1)
  1. BERINERT [Suspect]
     Indication: HEREDITARY ANGIOEDEMA
     Dosage: 20 UNITS/KG; 1000 UNITS IN AM INTRAVENOUS (NOT OTHERWISE SPECIFIED)) (20U/KG, 1000 UNITS 7-8 HOURS AFTER FIRST DOSE INTRAVENOUS (NOT OTHERWISE SPECIFIED)
     Dates: start: 20120407

REACTIONS (1)
  - Drug ineffective [None]
